FAERS Safety Report 9515945 (Version 1)
Quarter: 2013Q3

REPORT INFORMATION
  Report Type: Report from Study
  Country: CA (occurrence: CA)
  Receive Date: 20130911
  Receipt Date: 20130911
  Transmission Date: 20140515
  Serious: Yes (Hospitalization, Other)
  Sender: FDA-Public Use
  Company Number: CA-JNJFOC-20130902888

PATIENT
  Sex: Male
  Weight: 105 kg

DRUGS (5)
  1. REMICADE [Suspect]
     Indication: PSORIASIS
     Route: 042
     Dates: start: 20110803
  2. REMICADE [Suspect]
     Indication: PSORIASIS
     Route: 042
     Dates: start: 20130323, end: 20130323
  3. PSORALEN PLUS ULTRAVIOLET LIGHT THERAPY [Concomitant]
     Route: 065
  4. METHOTREXATE [Concomitant]
     Route: 065
  5. CYCLOSPORINE [Concomitant]
     Route: 065

REACTIONS (3)
  - Cholecystectomy [Unknown]
  - Peripancreatic fluid collection [Unknown]
  - Aortic aneurysm [Unknown]
